FAERS Safety Report 6058424-5 (Version None)
Quarter: 2009Q1

REPORT INFORMATION
  Report Type: 
  Country: None (occurrence: None)
  Receive Date: 20090130
  Receipt Date: 20090122
  Transmission Date: 20090719
  Serious: Yes (Hospitalization)
  Sender: FDA-Public Use
  Company Number: US-JNJFOC-20090101784

PATIENT
  Sex: Male
  Weight: 106.6 kg

DRUGS (8)
  1. DURAGESIC-100 [Suspect]
     Indication: NEUROPATHY PERIPHERAL
     Route: 062
  2. LASIX [Concomitant]
     Indication: FLUID RETENTION
     Dosage: AS NEEDED
     Route: 048
  3. HUMULIN R [Concomitant]
     Dosage: AS NEEDED
     Route: 058
  4. HUMULIN N [Concomitant]
     Dosage: AS NEEDED
     Route: 058
  5. ATENOLOL [Concomitant]
     Indication: CARDIAC DISORDER
     Route: 048
  6. ZETIA [Concomitant]
     Indication: CARDIAC DISORDER
     Route: 048
  7. LIPITOR [Concomitant]
     Indication: BLOOD CHOLESTEROL
     Route: 048
  8. LORAZEPAM [Concomitant]
     Indication: NERVOUSNESS
     Dosage: AS NEEDED
     Route: 048

REACTIONS (8)
  - BLOOD GLUCOSE INCREASED [None]
  - CONDITION AGGRAVATED [None]
  - GANGRENE [None]
  - INCORRECT DRUG ADMINISTRATION DURATION [None]
  - NEURALGIA [None]
  - NEUROPATHY PERIPHERAL [None]
  - TOE AMPUTATION [None]
  - WEIGHT DECREASED [None]
